FAERS Safety Report 20383936 (Version 2)
Quarter: 2022Q1

REPORT INFORMATION
  Report Type: Spontaneous
  Country: TR (occurrence: TR)
  Receive Date: 20220127
  Receipt Date: 20220210
  Transmission Date: 20220423
  Serious: Yes (Hospitalization, Other)
  Sender: FDA-Public Use
  Company Number: TR-TEVA-2022-TR-2001083

PATIENT
  Sex: Male

DRUGS (17)
  1. ETOPOSIDE [Suspect]
     Active Substance: ETOPOSIDE
     Indication: Langerhans^ cell histiocytosis
     Dosage: FOR 6 WEEKS; DAL-HX 90 GROUP C PROTOCOL, 5 MG/KG ONCE IN WEEK
     Route: 065
  2. METHOTREXATE [Suspect]
     Active Substance: METHOTREXATE
     Indication: Langerhans^ cell histiocytosis
     Dosage: MAINTENANCE TREATMENT, 16 MG/KG ONCE IN A WEEK
     Route: 065
  3. PREDNISOLONE [Suspect]
     Active Substance: PREDNISOLONE
     Indication: Langerhans^ cell histiocytosis
     Dosage: 40 MG/M2 DAILY; FOR 4 WEEKS, THEN TAPERED OFF OVER 2 MORE WEEKS; DAL-HX 90 GROUP C PROTOCOL
     Route: 065
  4. PREDNISOLONE [Suspect]
     Active Substance: PREDNISOLONE
     Dosage: 1 MG/KG DAILY; COP PROTOCOL
     Route: 065
  5. PREDNISOLONE [Suspect]
     Active Substance: PREDNISOLONE
     Dosage: 1 MG/KG DAILY; ALONG WITH CICLOSPORIN
     Route: 065
  6. VINBLASTINE [Suspect]
     Active Substance: VINBLASTINE
     Indication: Langerhans^ cell histiocytosis
     Dosage: FOR 6 WEEKS; DAL-HX 90 GROUP C PROTOCOL, 0.2 MG/KG ONCE IN WEEK
     Route: 065
  7. VINBLASTINE [Suspect]
     Active Substance: VINBLASTINE
     Dosage: AS INITIAL TREATMENT, FOR 6 WEEKS; LCH III CHEMOTHERAPY PROTOCOL; INITIAL TREATMENT?6 MG/M2 ONCE IN
     Route: 042
  8. VINBLASTINE [Suspect]
     Active Substance: VINBLASTINE
     Dosage: 6 MG/M2 DAILY; DAY 1 EVERY 3 WEEKS UNTIL END OF MONTH 12; LCH III CHEMOTHERAPY PROTOCOL; CONTINUATIO
     Route: 042
  9. CYCLOPHOSPHAMIDE [Suspect]
     Active Substance: CYCLOPHOSPHAMIDE
     Indication: Langerhans^ cell histiocytosis
     Dosage: COP PROTOCOL, 600 MG/M2
     Route: 065
  10. VINCRISTINE [Suspect]
     Active Substance: VINCRISTINE
     Indication: Langerhans^ cell histiocytosis
     Dosage: COP PROTOCOL, 1.4 MG/M2
     Route: 065
  11. PREDNISONE [Suspect]
     Active Substance: PREDNISONE
     Indication: Langerhans^ cell histiocytosis
     Dosage: 40 MG/M2 DAILY; 4-WEEK COURSE, THEN GRADUALLY DECREASED OVER 2 MORE WEEKS; LCH III CHEMOTHERAPY PROT
     Route: 065
  12. PREDNISONE [Suspect]
     Active Substance: PREDNISONE
     Dosage: 40 MG/M2 DAILY; 3 DOSES DAILY DAYS 1-5 EVERY 3 WEEKS UNTIL THE END OF MONTH 12; LCH III CHEMOTHERAPY
     Route: 065
  13. MERCAPTOPURINE [Suspect]
     Active Substance: MERCAPTOPURINE
     Indication: Langerhans^ cell histiocytosis
     Dosage: 50 MG/M2 DAILY; UNTIL THE END OF MONTH 12; LCH III CHEMOTHERAPY PROTOCOL; CONTINUATION TREATMENT
     Route: 048
  14. CYTARABINE [Suspect]
     Active Substance: CYTARABINE
     Indication: Langerhans^ cell histiocytosis
     Dosage: 100 MG/M2 DAILY;
     Route: 065
  15. CLADRIBINE [Suspect]
     Active Substance: CLADRIBINE
     Indication: Langerhans^ cell histiocytosis
     Dosage: 5 MG/M2 DAILY;
     Route: 065
  16. CYCLOSPORINE [Suspect]
     Active Substance: CYCLOSPORINE
     Indication: Langerhans^ cell histiocytosis
     Dosage: 12 MG/KG DAILY;
     Route: 065
  17. HUMAN IMMUNOGLOBULIN G [Concomitant]
     Active Substance: HUMAN IMMUNOGLOBULIN G
     Indication: Product used for unknown indication
     Route: 042

REACTIONS (3)
  - Drug ineffective [Unknown]
  - Hypertrichosis [Recovered/Resolved]
  - Myelosuppression [Recovered/Resolved]
